FAERS Safety Report 9002111 (Version 1)
Quarter: 2013Q1

REPORT INFORMATION
  Report Type: Spontaneous
  Country: US (occurrence: None)
  Receive Date: 20130103
  Receipt Date: 20130103
  Transmission Date: 20140127
  Serious: Yes (Other)
  Sender: FDA-Public Use
  Company Number: None

PATIENT
  Age: 47 Year
  Sex: Male
  Weight: 90.27 kg

DRUGS (2)
  1. OLANZAPINE [Suspect]
     Indication: MENTAL DISORDER
     Dosage: 1/2 TAB
     Route: 048
  2. OLANZAPINE [Suspect]
     Indication: SCHIZOPHRENIA
     Dosage: 1/2 TAB
     Route: 048

REACTIONS (11)
  - Constipation [None]
  - Hypotension [None]
  - Weight increased [None]
  - Dizziness [None]
  - Personality disorder [None]
  - Akathisia [None]
  - Cognitive disorder [None]
  - Motor dysfunction [None]
  - Bradycardia [None]
  - Tachycardia [None]
  - Syncope [None]
